FAERS Safety Report 18823642 (Version 1)
Quarter: 2021Q1

REPORT INFORMATION
  Report Type: Spontaneous
  Country: US (occurrence: US)
  Receive Date: 20210202
  Receipt Date: 20210202
  Transmission Date: 20210419
  Serious: No
  Sender: FDA-Public Use
  Company Number: US-NEOS THERAPEUTICS, LP-2020NEO00058

PATIENT
  Age: 56 Year
  Sex: Female

DRUGS (1)
  1. ADZENYS XR?ODT [Suspect]
     Active Substance: AMPHETAMINE
     Dosage: 9.4 MG, 1X/DAY

REACTIONS (5)
  - Peripheral swelling [Not Recovered/Not Resolved]
  - Ligament sprain [Unknown]
  - Pain in extremity [Unknown]
  - Intentional product misuse [Unknown]
  - Fall [Unknown]

NARRATIVE: CASE EVENT DATE: 20201229
